FAERS Safety Report 19654157 (Version 1)
Quarter: 2021Q3

REPORT INFORMATION
  Report Type: Report from Study
  Country: US (occurrence: US)
  Receive Date: 20210803
  Receipt Date: 20210803
  Transmission Date: 20211014
  Serious: Yes (Hospitalization, Other)
  Sender: FDA-Public Use
  Company Number: US-JAZZ-JPI-P-013988

PATIENT
  Age: 43 Year
  Sex: Female
  Weight: 93.18 kg

DRUGS (30)
  1. XYREM [Suspect]
     Active Substance: SODIUM OXYBATE
     Indication: NARCOLEPSY
     Dosage: 1 GRAM, BID
     Route: 048
     Dates: start: 20100909, end: 201009
  2. DESVENLAFAXINE. [Concomitant]
     Active Substance: DESVENLAFAXINE
  3. HYOSCYAMINE. [Concomitant]
     Active Substance: HYOSCYAMINE
  4. GLUCOSAMINE + CHONDORITIN [Concomitant]
  5. CALCIUM [CALCIUM GLUCONATE] [Concomitant]
  6. ONDANSETRON [Concomitant]
     Active Substance: ONDANSETRON
  7. ENOXAPARIN SODIUM. [Suspect]
     Active Substance: ENOXAPARIN SODIUM
     Indication: DEVICE RELATED THROMBOSIS
     Dates: start: 201103, end: 201104
  8. AMPHETAMINE [Concomitant]
     Active Substance: AMPHETAMINE
  9. CALCIUM AND VITAMIN D [Concomitant]
     Active Substance: CALCIUM\VITAMIN D
  10. LORATADINE. [Concomitant]
     Active Substance: LORATADINE
  11. XYREM [Suspect]
     Active Substance: SODIUM OXYBATE
     Dosage: 6 GRAM
     Route: 048
     Dates: start: 2010, end: 20101205
  12. XYREM [Suspect]
     Active Substance: SODIUM OXYBATE
     Dosage: 3.5 GRAM, SECOND DOSE
     Route: 048
     Dates: start: 20101206
  13. VITAMIN D [ERGOCALCIFEROL] [Concomitant]
     Active Substance: ERGOCALCIFEROL
  14. TRAZODONE [Concomitant]
     Active Substance: TRAZODONE HYDROCHLORIDE
  15. WARFARIN [Suspect]
     Active Substance: WARFARIN
     Indication: DEVICE RELATED THROMBOSIS
     Dates: start: 201103, end: 201104
  16. HYDROXYZINE [Concomitant]
     Active Substance: HYDROXYZINE HYDROCHLORIDE
  17. SIMVASTATIN. [Concomitant]
     Active Substance: SIMVASTATIN
  18. DULOXETINE. [Concomitant]
     Active Substance: DULOXETINE
  19. XYREM [Suspect]
     Active Substance: SODIUM OXYBATE
     Dosage: 3 GRAM, FIRST DOSE
     Route: 048
     Dates: start: 20101206
  20. SYNTHROID [Concomitant]
     Active Substance: LEVOTHYROXINE SODIUM
  21. LORAZEPAM. [Concomitant]
     Active Substance: LORAZEPAM
  22. ZONISAMIDE. [Concomitant]
     Active Substance: ZONISAMIDE
  23. LUBIPROSTONE [Concomitant]
     Active Substance: LUBIPROSTONE
  24. OXYCODONE AND ACETAMINOPHEN [Concomitant]
     Active Substance: ACETAMINOPHEN\OXYCODONE HYDROCHLORIDE
  25. FLUOXETINE [Concomitant]
     Active Substance: FLUOXETINE HYDROCHLORIDE
  26. XYREM [Suspect]
     Active Substance: SODIUM OXYBATE
     Indication: CATAPLEXY
     Dosage: 2 GRAM, BID
     Route: 048
     Dates: start: 201009, end: 2010
  27. ROPINIROLE HYDROCHLORIDE. [Concomitant]
     Active Substance: ROPINIROLE HYDROCHLORIDE
  28. CLONAZEPAM. [Concomitant]
     Active Substance: CLONAZEPAM
  29. ASPIRIN [ACETYLSALICYLIC ACID] [Concomitant]
     Active Substance: ASPIRIN
  30. OMEGA 3 FISH OIL [FISH OIL] [Concomitant]

REACTIONS (19)
  - Immunodeficiency common variable [Not Recovered/Not Resolved]
  - Haemorrhage [Recovered/Resolved]
  - Blood immunoglobulin G decreased [Unknown]
  - Haematoma [Unknown]
  - Clostridium difficile infection [Recovered/Resolved]
  - Ear infection [Unknown]
  - Erythema [Unknown]
  - Condition aggravated [Unknown]
  - Otitis externa [Unknown]
  - Dehydration [Recovered/Resolved]
  - Haemorrhoids [Unknown]
  - Abscess limb [Unknown]
  - Vulvovaginal mycotic infection [Unknown]
  - Ear infection fungal [Unknown]
  - Staphylococcal skin infection [Unknown]
  - Pain in extremity [Unknown]
  - Peripheral swelling [Unknown]
  - Condition aggravated [Unknown]
  - Device related thrombosis [Unknown]

NARRATIVE: CASE EVENT DATE: 20100913
